FAERS Safety Report 8406070-8 (Version None)
Quarter: 2012Q2

REPORT INFORMATION
  Report Type: 
  Country: None (occurrence: None)
  Receive Date: 20120604
  Receipt Date: 20120525
  Transmission Date: 20120825
  Serious: Yes (Hospitalization, Other)
  Sender: FDA-Public Use
  Company Number: US-JNJFOC-20100806845

PATIENT
  Sex: Female

DRUGS (19)
  1. LEVAQUIN [Suspect]
     Indication: H1N1 INFLUENZA
     Route: 048
     Dates: start: 20061201, end: 20070101
  2. MOBIC [Concomitant]
     Indication: INFLAMMATION
     Route: 065
     Dates: start: 20050101
  3. WELLBUTRIN [Concomitant]
     Indication: ANXIETY
     Route: 065
     Dates: start: 20000101
  4. SINGULAIR [Concomitant]
     Indication: RESPIRATORY DISORDER
     Route: 065
     Dates: start: 20020101
  5. CELEBREX [Concomitant]
     Indication: INFLAMMATION
     Route: 065
     Dates: start: 20050101
  6. OMEPRAZOLE [Concomitant]
     Indication: GASTROOESOPHAGEAL REFLUX DISEASE
     Route: 065
     Dates: start: 20020101
  7. FLOVENT [Concomitant]
     Indication: RESPIRATORY DISORDER
     Route: 065
     Dates: start: 20020101
  8. METHYLPREDNISOLONE [Suspect]
     Indication: INFLAMMATION
     Route: 065
  9. ALBUTEROL [Concomitant]
     Indication: RESPIRATORY DISORDER
     Route: 065
     Dates: start: 20020101
  10. LEVAQUIN [Suspect]
     Indication: PRODUCT USED FOR UNKNOWN INDICATION
     Route: 048
  11. PREDNISONE [Suspect]
     Indication: INFLAMMATION
     Route: 065
  12. LORAZEPAM [Concomitant]
     Indication: ANXIETY
     Route: 065
     Dates: start: 20000101
  13. ACIPHEX [Concomitant]
     Indication: GASTROOESOPHAGEAL REFLUX DISEASE
     Route: 065
     Dates: start: 20020101
  14. LEVAQUIN [Suspect]
     Indication: SINUSITIS
     Route: 048
     Dates: start: 20061201, end: 20070101
  15. NEXIUM [Concomitant]
     Indication: GASTROOESOPHAGEAL REFLUX DISEASE
     Route: 065
     Dates: start: 20020101
  16. HYDROCODONE [Concomitant]
     Indication: PAIN
     Route: 065
     Dates: start: 20070101
  17. ULTRAM [Concomitant]
     Indication: INFLAMMATION
     Route: 065
  18. NAPROXEN [Concomitant]
     Indication: INFLAMMATION
     Route: 065
     Dates: start: 20050101
  19. DESLORATADINE [Concomitant]
     Indication: HYPERSENSITIVITY
     Route: 065
     Dates: start: 20020101

REACTIONS (7)
  - DEPRESSION [None]
  - MUSCLE RUPTURE [None]
  - TENDONITIS [None]
  - ROTATOR CUFF SYNDROME [None]
  - TENDON RUPTURE [None]
  - TENOSYNOVITIS STENOSANS [None]
  - ANXIETY [None]
